FAERS Safety Report 8292821-2 (Version None)
Quarter: 2012Q2

REPORT INFORMATION
  Report Type: 
  Country: None (occurrence: None)
  Receive Date: 20120417
  Receipt Date: 20120405
  Transmission Date: 20120825
  Serious: Yes (Other)
  Sender: FDA-Public Use
  Company Number: GB-GILEAD-2012-0053216

PATIENT
  Sex: Female

DRUGS (3)
  1. ATAZANAVIR [Suspect]
     Indication: ANTIRETROVIRAL THERAPY
     Dosage: 300 MG, QD
  2. TRUVADA [Suspect]
     Indication: ANTIRETROVIRAL THERAPY
     Dosage: 1 DF, QD
  3. RITONAVIR [Suspect]
     Indication: ANTIRETROVIRAL THERAPY
     Dosage: 100 MG, QD

REACTIONS (2)
  - OCULAR ICTERUS [None]
  - HYPERBILIRUBINAEMIA [None]
